FAERS Safety Report 5179221-9 (Version None)
Quarter: 2006Q4

REPORT INFORMATION
  Report Type: 
  Country: None (occurrence: None)
  Receive Date: 20061219
  Receipt Date: 20061208
  Transmission Date: 20070319
  Serious: Yes (Other)
  Sender: FDA-Public Use
  Company Number: 2006SE06623

PATIENT
  Age: 48 Year
  Sex: Male

DRUGS (12)
  1. SEROQUEL [Suspect]
     Indication: SCHIZOPHRENIA
     Route: 048
  2. ROXIAM [Suspect]
     Indication: SCHIZOPHRENIA
  3. RISPERDAL [Suspect]
     Indication: SCHIZOPHRENIA
  4. HIBERNAL [Suspect]
     Indication: SCHIZOPHRENIA
  5. TRILAFON [Suspect]
     Indication: SCHIZOPHRENIA
  6. NOZINAN [Suspect]
     Indication: SCHIZOPHRENIA
  7. MALLOROL [Suspect]
     Indication: SCHIZOPHRENIA
  8. TERFLUZIN [Suspect]
     Indication: SCHIZOPHRENIA
  9. HALDOL [Suspect]
     Indication: SCHIZOPHRENIA
  10. CISORDINOL [Suspect]
     Indication: SCHIZOPHRENIA
  11. LEPONEX [Suspect]
     Indication: SCHIZOPHRENIA
  12. ZYPREXA [Suspect]
     Indication: SCHIZOPHRENIA

REACTIONS (1)
  - RETINOPATHY [None]
